FAERS Safety Report 25532059 (Version 1)
Quarter: 2025Q3

REPORT INFORMATION
  Report Type: Spontaneous
  Country: US (occurrence: US)
  Receive Date: 20250709
  Receipt Date: 20250709
  Transmission Date: 20251020
  Serious: No
  Sender: MADRIGAL PHARMACEUTICALS
  Company Number: US-MADRIGAL PHARMACEUTICALS, INC-2025REZ6537

PATIENT

DRUGS (2)
  1. REZDIFFRA [Suspect]
     Active Substance: RESMETIROM
     Indication: Metabolic dysfunction-associated steatohepatitis
     Dosage: 80 MILLIGRAM, QD
     Route: 048
     Dates: start: 20250213
  2. REZDIFFRA [Suspect]
     Active Substance: RESMETIROM
     Dosage: 40 MILLIGRAM, QD
     Route: 048
     Dates: start: 202505

REACTIONS (6)
  - Vision blurred [Unknown]
  - Hepatic enzyme abnormal [Unknown]
  - Diarrhoea [Recovered/Resolved]
  - Cholelithiasis [Unknown]
  - Intentional underdose [Unknown]
  - Wrong technique in product usage process [Unknown]

NARRATIVE: CASE EVENT DATE: 20250101
